FAERS Safety Report 16342091 (Version 1)
Quarter: 2019Q2

REPORT INFORMATION
  Report Type: Report from Study
  Country: US (occurrence: US)
  Receive Date: 20190522
  Receipt Date: 20190522
  Transmission Date: 20190711
  Serious: Yes (Other)
  Sender: FDA-Public Use
  Company Number: US-ROCHE-2323400

PATIENT
  Age: 67 Year

DRUGS (1)
  1. ALTEPLASE. [Suspect]
     Active Substance: ALTEPLASE
     Indication: ISCHAEMIC STROKE
     Dosage: FOLLOWED BY 61MG INFUSION
     Route: 040

REACTIONS (3)
  - Cerebral haemorrhage [Unknown]
  - Brain midline shift [Unknown]
  - Brain herniation [Unknown]
